FAERS Safety Report 5131935-2 (Version None)
Quarter: 2006Q4

REPORT INFORMATION
  Report Type: 
  Country: None (occurrence: None)
  Receive Date: 20061016
  Receipt Date: 20061003
  Transmission Date: 20070319
  Serious: Yes (Other)
  Sender: FDA-Public Use
  Company Number: 2006103068

PATIENT
  Age: 16 Year
  Sex: Male

DRUGS (6)
  1. SOLU-MEDROL [Suspect]
     Indication: ASTHMA
     Dosage: 125 MG (125 MG, 1 IN 1 D)
     Dates: start: 20060101, end: 20060101
  2. SOLU-MEDROL [Suspect]
     Indication: URTICARIA
     Dosage: 125 MG (125 MG, 1 IN 1 D)
     Dates: start: 20060101, end: 20060101
  3. ADVAIR DISKUS 100/50 [Concomitant]
  4. MONTELUKAST SODIUM (MONTELUKAST SODIUM) [Concomitant]
  5. ZYRTEC [Concomitant]
  6. BENADRYL [Concomitant]

REACTIONS (6)
  - ANXIETY [None]
  - ASTHMA [None]
  - CONDITION AGGRAVATED [None]
  - DIZZINESS [None]
  - SYNCOPE VASOVAGAL [None]
  - URTICARIA [None]
